FAERS Safety Report 7622427-7 (Version None)
Quarter: 2011Q3

REPORT INFORMATION
  Report Type: 
  Country: None (occurrence: None)
  Receive Date: 20110720
  Receipt Date: 20110523
  Transmission Date: 20111222
  Serious: No
  Sender: FDA-Public Use
  Company Number: US-MYLANLABS-2011S1009771

PATIENT
  Age: 55 Year
  Sex: Female

DRUGS (10)
  1. LAMOTRIGINE [Suspect]
     Indication: DEPRESSION
     Route: 048
     Dates: start: 20110101
  2. LAMOTRIGINE [Suspect]
     Route: 048
     Dates: end: 20110523
  3. ESTRADIOL [Concomitant]
     Indication: MENOPAUSE
     Dosage: TAKEN FOR SEVERAL YEARS
  4. PROMETRIUM [Concomitant]
     Indication: MENOPAUSE
     Dosage: TAKEN FOR SEVERAL YEARS
  5. BENADRYL [Concomitant]
     Indication: INSOMNIA
  6. RITALIN [Concomitant]
     Dosage: TAKEN FOR SEVERAL YEARS
  7. LAMOTRIGINE [Suspect]
     Route: 048
     Dates: end: 20110523
  8. LAMOTRIGINE [Suspect]
     Indication: MOOD DISORDER DUE TO A GENERAL MEDICAL CONDITION
     Route: 048
     Dates: start: 20110101
  9. ABILIFY [Concomitant]
     Dosage: TAKEN FOR SEVERAL YEARS
  10. ATIVAN [Concomitant]
     Dosage: TAKEN FOR SEVERAL YEARS

REACTIONS (3)
  - MOOD DISORDER DUE TO A GENERAL MEDICAL CONDITION [None]
  - DRUG INEFFECTIVE FOR UNAPPROVED INDICATION [None]
  - DEPRESSION [None]
